FAERS Safety Report 7540029-8 (Version None)
Quarter: 2011Q2

REPORT INFORMATION
  Report Type: 
  Country: None (occurrence: None)
  Receive Date: 20110610
  Receipt Date: 20110531
  Transmission Date: 20111010
  Serious: Yes (Hospitalization)
  Sender: FDA-Public Use
  Company Number: US-BAYER-200943221NA

PATIENT
  Age: 36 Year
  Sex: Female
  Weight: 73 kg

DRUGS (25)
  1. YASMIN [Suspect]
     Dosage: UNK
     Route: 048
     Dates: start: 20080202, end: 20080718
  2. YAZ [Suspect]
     Route: 048
     Dates: start: 20070501, end: 20071101
  3. IMITREX [Concomitant]
  4. LEXAPRO [Concomitant]
     Dates: start: 20030101
  5. LEVOTHYROXINE SODIUM [Concomitant]
  6. STATIN [Concomitant]
     Dates: end: 20081115
  7. MIRTAZAPINE [Concomitant]
  8. IBUPROFEN [Concomitant]
     Dates: start: 19900101
  9. PAROXETINE HCL [Concomitant]
  10. VYTORIN [Concomitant]
  11. KLONOPIN [Concomitant]
     Dates: start: 20030101
  12. PENICILLIN [Concomitant]
  13. JANUVIA [Concomitant]
     Dates: end: 20081101
  14. SIMVASTATIN [Concomitant]
  15. ASPIRIN [Concomitant]
     Dates: end: 20081101
  16. BLOOD PRESSURE MEDICATION (NOS) [Concomitant]
     Dates: start: 20070101
  17. CYCLOBENZAPRINE [Concomitant]
  18. AVANDARYL [Concomitant]
  19. YAZ [Suspect]
     Route: 048
     Dates: start: 20080202, end: 20080801
  20. EFFEXOR [Concomitant]
  21. CLONAZEPAM [Concomitant]
  22. ZOLPIDEM [Concomitant]
  23. METFORMIN HCL [Concomitant]
     Dates: end: 20081101
  24. ZETIA [Concomitant]
     Dates: end: 20081101
  25. ROZEREM [Concomitant]

REACTIONS (10)
  - NAUSEA [None]
  - HEMIPARESIS [None]
  - DIPLOPIA [None]
  - DIZZINESS [None]
  - DYSPHAGIA [None]
  - HEADACHE [None]
  - CEREBELLAR HAEMORRHAGE [None]
  - PHOTOPHOBIA [None]
  - HAEMORRHAGIC CEREBRAL INFARCTION [None]
  - BALANCE DISORDER [None]
